FAERS Safety Report 9863082 (Version 1)
Quarter: 2014Q1

REPORT INFORMATION
  Report Type: Spontaneous
  Country: ES (occurrence: ES)
  Receive Date: 20140203
  Receipt Date: 20140203
  Transmission Date: 20141002
  Serious: Yes (Other)
  Sender: FDA-Public Use
  Company Number: PHHY2014ES010617

PATIENT
  Age: 14 Year
  Sex: Female

DRUGS (2)
  1. IMATINIB [Suspect]
  2. TACROLIMUS [Interacting]
     Dosage: 2 MG/12 HRS

REACTIONS (4)
  - Graft versus host disease in intestine [Unknown]
  - Drug level increased [Recovering/Resolving]
  - Drug interaction [Unknown]
  - Drug ineffective [Unknown]
